FAERS Safety Report 8228832-2 (Version None)
Quarter: 2012Q1

REPORT INFORMATION
  Report Type: 
  Country: None (occurrence: None)
  Receive Date: 20120322
  Receipt Date: 20120319
  Transmission Date: 20120608
  Serious: Yes (Hospitalization)
  Sender: FDA-Public Use
  Company Number: AU-GLAXOSMITHKLINE-B0785455A

PATIENT
  Sex: Female
  Weight: 53 kg

DRUGS (1)
  1. ZOFRAN [Suspect]
     Indication: VOMITING IN PREGNANCY
     Dosage: 8MG SEE DOSAGE TEXT
     Route: 065
     Dates: start: 20120116, end: 20120201

REACTIONS (3)
  - DEHYDRATION [None]
  - NAUSEA [None]
  - MATERNAL EXPOSURE DURING PREGNANCY [None]
